FAERS Safety Report 7490541-5 (Version None)
Quarter: 2011Q2

REPORT INFORMATION
  Report Type: 
  Country: None (occurrence: None)
  Receive Date: 20110512
  Receipt Date: 20110401
  Transmission Date: 20111010
  Serious: Yes (Disabling)
  Sender: FDA-Public Use
  Company Number: 20110274

PATIENT
  Age: 67 Year
  Sex: Female
  Weight: 62.1428 kg

DRUGS (1)
  1. DEXAMETHASONE SODIUM PHOSPHATE [Suspect]
     Indication: TRIGGER FINGER
     Dosage: 16 ML X 1, 2 TIMES PER WEEKS INJECTION NOS
     Route: 042
     Dates: start: 20110125, end: 20110315

REACTIONS (3)
  - PAIN [None]
  - OEDEMA PERIPHERAL [None]
  - CONDITION AGGRAVATED [None]
